FAERS Safety Report 5352016-9 (Version None)
Quarter: 2007Q2

REPORT INFORMATION
  Report Type: 
  Country: None (occurrence: None)
  Receive Date: 20070611
  Receipt Date: 20070601
  Transmission Date: 20071010
  Serious: Yes (Hospitalization, Other)
  Sender: FDA-Public Use
  Company Number: PHBS2005JP07233

PATIENT
  Age: 85 Year
  Sex: Female

DRUGS (7)
  1. GLEEVEC [Suspect]
     Indication: GASTROINTESTINAL STROMAL TUMOUR
     Dosage: 400 MG/D
     Route: 048
     Dates: start: 20050310, end: 20050317
  2. GLEEVEC [Suspect]
     Dosage: 100 MG/D
     Route: 048
  3. GLEEVEC [Suspect]
     Dosage: 400 MG/D
     Route: 048
     Dates: start: 20050324, end: 20050331
  4. GLEEVEC [Suspect]
     Dosage: 200 MG/D
     Route: 048
     Dates: start: 20050411, end: 20050421
  5. GLEEVEC [Suspect]
     Dosage: 400 MG/DAY
     Route: 048
     Dates: start: 20050511, end: 20070121
  6. GLEEVEC [Suspect]
     Dosage: 300 MG, QD
     Route: 048
     Dates: start: 20070122
  7. PREDONINE [Concomitant]
     Indication: MYASTHENIA GRAVIS
     Dates: start: 20050310

REACTIONS (5)
  - ANAEMIA [None]
  - HAEMATURIA [None]
  - NAUSEA [None]
  - OEDEMA [None]
  - PROTEINURIA [None]
